FAERS Safety Report 5026086-1 (Version None)
Quarter: 2006Q2

REPORT INFORMATION
  Report Type: 
  Country: None (occurrence: None)
  Receive Date: 20060612
  Receipt Date: 20060612
  Transmission Date: 20061013
  Serious: Yes (Other)
  Sender: FDA-Public Use
  Company Number: None

PATIENT
  Sex: Female
  Weight: 103.8737 kg

DRUGS (1)
  1. LYRICA [Suspect]
     Indication: NEURALGIA
     Dosage: 150MG TWICE A DAY PO
     Route: 048
     Dates: start: 20051117, end: 20060610

REACTIONS (9)
  - ABORTION SPONTANEOUS [None]
  - DRUG EXPOSURE BEFORE PREGNANCY [None]
  - DRUG EXPOSURE DURING PREGNANCY [None]
  - DRUG WITHDRAWAL SYNDROME [None]
  - INTRA-UTERINE DEATH [None]
  - MUSCLE SPASMS [None]
  - PAIN [None]
  - TREMOR [None]
  - VAGINAL HAEMORRHAGE [None]
